FAERS Safety Report 14130859 (Version 5)
Quarter: 2018Q2

REPORT INFORMATION
  Report Type: Report from Study
  Country: US (occurrence: US)
  Receive Date: 20171026
  Receipt Date: 20180618
  Transmission Date: 20180711
  Serious: Yes (Other)
  Sender: FDA-Public Use
  Company Number: US-AMGEN-USASP2017129718

PATIENT
  Age: 54 Year
  Sex: Female

DRUGS (5)
  1. INSULIN [Concomitant]
     Active Substance: INSULIN NOS
     Dosage: UNK
  2. REPATHA [Suspect]
     Active Substance: EVOLOCUMAB
     Indication: ARTERIOSCLEROSIS CORONARY ARTERY
  3. REPATHA [Suspect]
     Active Substance: EVOLOCUMAB
     Indication: HYPERCHOLESTEROLAEMIA
  4. REPATHA [Suspect]
     Active Substance: EVOLOCUMAB
     Indication: BLOOD CHOLESTEROL
     Dosage: 140 MG, Q2WK
     Route: 065
     Dates: start: 20170628
  5. REPATHA [Suspect]
     Active Substance: EVOLOCUMAB
     Indication: BLOOD CHOLESTEROL INCREASED
     Dosage: 140 MG, Q2WK
     Route: 065

REACTIONS (25)
  - Hypoacusis [Unknown]
  - Influenza like illness [Unknown]
  - Dyspepsia [Unknown]
  - Muscle spasms [Unknown]
  - Injection site haemorrhage [Unknown]
  - Cough [Unknown]
  - Fear of injection [Unknown]
  - Helicobacter gastritis [Unknown]
  - Dysphagia [Unknown]
  - Abdominal pain upper [Unknown]
  - Headache [Unknown]
  - Injection site pruritus [Recovered/Resolved]
  - Rhinorrhoea [Unknown]
  - Pain in extremity [Unknown]
  - Injection site bruising [Unknown]
  - Weight increased [Not Recovered/Not Resolved]
  - Gait disturbance [Unknown]
  - Fatigue [Unknown]
  - White blood cell count increased [Unknown]
  - Malaise [Unknown]
  - Feeling abnormal [Unknown]
  - Injection site pain [Unknown]
  - Skin ulcer [Unknown]
  - Neuropathy peripheral [Unknown]
  - Accidental exposure to product [Unknown]

NARRATIVE: CASE EVENT DATE: 201707
